FAERS Safety Report 7571822-3 (Version None)
Quarter: 2011Q2

REPORT INFORMATION
  Report Type: 
  Country: None (occurrence: None)
  Receive Date: 20110624
  Receipt Date: 20110621
  Transmission Date: 20111010
  Serious: Yes (Other)
  Sender: FDA-Public Use
  Company Number: US-PFIZER INC-2011123059

PATIENT
  Sex: Female
  Weight: 53.061 kg

DRUGS (5)
  1. ADVAIR DISKUS 100/50 [Concomitant]
     Indication: ASTHMA
     Dosage: 250/50, 2X/DAY
  2. NEURONTIN [Suspect]
     Indication: NECK PAIN
     Dosage: UNK, 2X/DAY
     Route: 048
  3. NEURONTIN [Suspect]
     Indication: INTERVERTEBRAL DISC DISORDER
  4. WELLBUTRIN [Concomitant]
     Indication: DEPRESSION
     Dosage: 150 MG, 3X/DAY
  5. CLONAZEPAM [Concomitant]
     Indication: INSOMNIA
     Dosage: 2 MG, UNK

REACTIONS (1)
  - ASPARTATE AMINOTRANSFERASE ABNORMAL [None]
